FAERS Safety Report 6905358-7 (Version None)
Quarter: 2010Q3

REPORT INFORMATION
  Report Type: 
  Country: None (occurrence: None)
  Receive Date: 20100802
  Receipt Date: 20100727
  Transmission Date: 20110219
  Serious: Yes (Hospitalization, Disabling, Other)
  Sender: FDA-Public Use
  Company Number: 2009SP021082

PATIENT
  Age: 24 Year
  Sex: Female
  Weight: 62.5964 kg

DRUGS (3)
  1. NUVARING [Suspect]
     Indication: CONTRACEPTION
     Dates: start: 20041001, end: 20070824
  2. NUVARING [Suspect]
     Indication: DYSMENORRHOEA
     Dates: start: 20041001, end: 20070824
  3. LEXAPRO [Concomitant]

REACTIONS (24)
  - ABDOMINAL DISTENSION [None]
  - BLOOD CHOLESTEROL INCREASED [None]
  - BLOOD TRIGLYCERIDES INCREASED [None]
  - CHOLELITHIASIS [None]
  - CONSTIPATION [None]
  - CONTUSION [None]
  - DEPRESSION [None]
  - DRUG DOSE OMISSION [None]
  - DYSPNOEA [None]
  - ENDOMETRIOSIS [None]
  - FALL [None]
  - INCISION SITE PAIN [None]
  - INSOMNIA [None]
  - NEPHROLITHIASIS [None]
  - OVARIAN CYST RUPTURED [None]
  - PAIN IN EXTREMITY [None]
  - PANCREATITIS [None]
  - PELVIC INFLAMMATORY DISEASE [None]
  - PLEURITIC PAIN [None]
  - PULMONARY EMBOLISM [None]
  - SUICIDAL IDEATION [None]
  - URINARY TRACT INFECTION [None]
  - UTERINE CERVICAL PAIN [None]
  - WEIGHT DECREASED [None]
